FAERS Safety Report 6216593-8 (Version None)
Quarter: 2009Q2

REPORT INFORMATION
  Report Type: 
  Country: None (occurrence: None)
  Receive Date: 20090605
  Receipt Date: 20090527
  Transmission Date: 20091009
  Serious: Yes (Other)
  Sender: FDA-Public Use
  Company Number: PHHY2009DE21012

PATIENT
  Sex: Female

DRUGS (1)
  1. ACLASTA [Suspect]
     Indication: OSTEITIS DEFORMANS
     Dosage: 5 MG, UNK
     Route: 042
     Dates: start: 20090403, end: 20090403

REACTIONS (5)
  - CHILLS [None]
  - CIRCULATORY COLLAPSE [None]
  - DIARRHOEA [None]
  - FALL [None]
  - VOMITING [None]
